FAERS Safety Report 18501844 (Version 1)
Quarter: 2020Q4

REPORT INFORMATION
  Report Type: Spontaneous
  Country: US (occurrence: US)
  Receive Date: 20201113
  Receipt Date: 20201113
  Transmission Date: 20210114
  Serious: Yes (Hospitalization, Other)
  Sender: FDA-Public Use
  Company Number: US-CHIESI USA, INC.-US-2020CHI000656

PATIENT

DRUGS (5)
  1. BETHKIS [Suspect]
     Active Substance: TOBRAMYCIN
     Indication: BACTERIAL INFECTION
  2. BETHKIS [Suspect]
     Active Substance: TOBRAMYCIN
     Indication: BURKHOLDERIA MALLEI INFECTION
  3. BETHKIS [Suspect]
     Active Substance: TOBRAMYCIN
     Indication: OFF LABEL USE
  4. BETHKIS [Suspect]
     Active Substance: TOBRAMYCIN
     Indication: BURKHOLDERIA PSEUDOMALLEI INFECTION
  5. BETHKIS [Suspect]
     Active Substance: TOBRAMYCIN
     Indication: PSEUDOMONAS INFECTION
     Dosage: 300 MG, BID
     Route: 055
     Dates: start: 20181016

REACTIONS (2)
  - Panic attack [Recovered/Resolved]
  - Off label use [Not Recovered/Not Resolved]

NARRATIVE: CASE EVENT DATE: 20181016
